FAERS Safety Report 21465734 (Version 1)
Quarter: 2022Q4

REPORT INFORMATION
  Report Type: Spontaneous
  Country: FR (occurrence: FR)
  Receive Date: 20221017
  Receipt Date: 20221017
  Transmission Date: 20230112
  Serious: Yes (Hospitalization, Other)
  Sender: FDA-Public Use
  Company Number: None

PATIENT
  Age: 75 Year
  Sex: Male
  Weight: 60 kg

DRUGS (14)
  1. ELIQUIS [Suspect]
     Active Substance: APIXABAN
     Indication: Deep vein thrombosis
     Route: 048
     Dates: start: 20210312, end: 20210430
  2. BACTRIM [Suspect]
     Active Substance: SULFAMETHOXAZOLE\TRIMETHOPRIM
     Indication: Antibiotic prophylaxis
     Route: 048
     Dates: start: 20210310, end: 20210430
  3. ESOMEPRAZOLE MAGNESIUM [Suspect]
     Active Substance: ESOMEPRAZOLE MAGNESIUM
     Indication: Deep vein thrombosis
     Dosage: 40 MG
     Route: 048
     Dates: start: 20210310, end: 20210430
  4. CRESTOR [Concomitant]
     Active Substance: ROSUVASTATIN CALCIUM
     Indication: Product used for unknown indication
     Dosage: 5 MG
     Route: 048
  5. VENLAFAXINE HYDROCHLORIDE [Concomitant]
     Active Substance: VENLAFAXINE HYDROCHLORIDE
     Indication: Product used for unknown indication
     Dosage: 75 MG
     Route: 048
  6. PREDNISOLONE SODIUM METAZOATE [Concomitant]
     Active Substance: PREDNISOLONE SODIUM METAZOATE
     Indication: Pulmonary fibrosis
     Dosage: MG
     Route: 048
     Dates: start: 20210426, end: 20210430
  7. PREDNISOLONE SODIUM METAZOATE [Concomitant]
     Active Substance: PREDNISOLONE SODIUM METAZOATE
     Dosage: MG
     Route: 048
     Dates: start: 20210418, end: 20210422
  8. PREDNISOLONE SODIUM METAZOATE [Concomitant]
     Active Substance: PREDNISOLONE SODIUM METAZOATE
     Dosage: MG
     Route: 048
     Dates: start: 20210422, end: 20210426
  9. PREDNISOLONE SODIUM METAZOATE [Concomitant]
     Active Substance: PREDNISOLONE SODIUM METAZOATE
     Dosage: MG
     Route: 048
     Dates: start: 20210215, end: 20210418
  10. PERINDOPRIL [Concomitant]
     Active Substance: PERINDOPRIL
     Indication: Product used for unknown indication
     Dosage: 8 MG
     Route: 048
  11. METFORMIN HYDROCHLORIDE [Concomitant]
     Active Substance: METFORMIN HYDROCHLORIDE
     Indication: Product used for unknown indication
     Dosage: 500 MG
     Route: 048
  12. BISOPROLOL [Concomitant]
     Active Substance: BISOPROLOL
     Indication: Product used for unknown indication
     Dosage: 5 MG
     Route: 048
  13. LERCANIDIPINE HYDROCHLORIDE [Concomitant]
     Active Substance: LERCANIDIPINE HYDROCHLORIDE
     Indication: Product used for unknown indication
     Dosage: 10 MG
     Route: 048
  14. CALCIUM CARBONATE\CHOLECALCIFEROL [Concomitant]
     Active Substance: CALCIUM CARBONATE\CHOLECALCIFEROL
     Indication: Product used for unknown indication
     Route: 048

REACTIONS (1)
  - Drug reaction with eosinophilia and systemic symptoms [Recovered/Resolved]

NARRATIVE: CASE EVENT DATE: 20210427
